FAERS Safety Report 8764365 (Version 1)
Quarter: 2012Q4

REPORT INFORMATION
  Report Type: 
  Country: IT (occurrence: IT)
  Receive Date: 20120831
  Receipt Date: 20120831
  Transmission Date: 20130627
  Serious: Yes (Other)
  Sender: FDA-Public Use
  Company Number: PHHY2012IT074697

PATIENT
  Age: 44 Year
  Sex: Male

DRUGS (1)
  1. METFORMIN [Suspect]
     Indication: DIABETES MELLITUS
     Dosage: 1000 mg, UNK
     Route: 048
     Dates: start: 20120101, end: 20120725

REACTIONS (2)
  - Presyncope [Recovering/Resolving]
  - Palpitations [Recovering/Resolving]
